FAERS Safety Report 10082126 (Version 1)
Quarter: 2014Q2

REPORT INFORMATION
  Report Type: Spontaneous
  Country: FR (occurrence: FR)
  Receive Date: 20140416
  Receipt Date: 20140416
  Transmission Date: 20141212
  Serious: Yes (Other)
  Sender: FDA-Public Use
  Company Number: FR-WATSON-2014-07296

PATIENT
  Age: 48 Year
  Sex: Female
  Weight: 60 kg

DRUGS (2)
  1. GENTAMICIN (UNKNOWN) [Suspect]
     Indication: ENDOCARDITIS STAPHYLOCOCCAL
     Dosage: UNKNOWN
     Route: 065
  2. VANCOMYCIN (UNKNOWN) [Suspect]
     Indication: ENDOCARDITIS STAPHYLOCOCCAL
     Dosage: UNKNOWN
     Route: 065

REACTIONS (1)
  - Renal failure [Not Recovered/Not Resolved]
